FAERS Safety Report 5771456-7 (Version None)
Quarter: 2008Q2

REPORT INFORMATION
  Report Type: 
  Country: None (occurrence: None)
  Receive Date: 20080610
  Receipt Date: 20080605
  Transmission Date: 20081010
  Serious: Yes (Other)
  Sender: FDA-Public Use
  Company Number: 2008SP007826

PATIENT
  Age: 72 Year
  Sex: Female

DRUGS (2)
  1. PEG-INTRON [Suspect]
     Indication: HEPATITIS C
     Dosage: 120 MCG;QW;SC
     Route: 058
     Dates: end: 20080118
  2. REBETOL [Suspect]
     Indication: HEPATITIS C
     Dosage: 800 MG;QD;PO
     Route: 048
     Dates: end: 20080118

REACTIONS (4)
  - GASTRITIS EROSIVE [None]
  - HAEMOLYTIC ANAEMIA [None]
  - PEPTIC ULCER [None]
  - ULCER HAEMORRHAGE [None]
